FAERS Safety Report 7800483-0 (Version None)
Quarter: 2011Q4

REPORT INFORMATION
  Report Type: 
  Country: None (occurrence: None)
  Receive Date: 20111006
  Receipt Date: 20110929
  Transmission Date: 20120403
  Serious: Yes (Other)
  Sender: FDA-Public Use
  Company Number: CA-PFIZER INC-2011200676

PATIENT
  Age: 68 Year
  Sex: Female
  Weight: 58 kg

DRUGS (7)
  1. XALATAN [Suspect]
     Indication: GLAUCOMA
     Dosage: 1 GTT IN THE RIGHT EYE, 1X/DAY
     Route: 047
     Dates: start: 20050101
  2. ATENOLOL [Concomitant]
     Indication: HEART RATE
     Dosage: 25 MG, UNK
  3. ALENDRONATE SODIUM [Concomitant]
     Indication: OSTEOPOROSIS
     Dosage: 1 DF, WEEKLY
  4. CALCIUM [Concomitant]
     Indication: OSTEOPOROSIS
     Dosage: 650 MG, 2X/DAY
     Dates: start: 20010101
  5. ATENOLOL [Concomitant]
     Indication: HYPERTENSION
     Dosage: 50 MG, 1X/DAY
  6. MULTI-VITAMINS [Concomitant]
     Dosage: DAILY
  7. FOSAMAX [Concomitant]
     Indication: OSTEOPOROSIS
     Dosage: WEEKLY
     Dates: start: 20010101

REACTIONS (1)
  - EYE OPERATION [None]
